FAERS Safety Report 23629330 (Version 2)
Quarter: 2024Q3

REPORT INFORMATION
  Report Type: Report from Study
  Country: CA (occurrence: CA)
  Receive Date: 20240313
  Receipt Date: 20240726
  Transmission Date: 20241016
  Serious: Yes (Death, Hospitalization)
  Sender: ABBVIE
  Company Number: CA-ABBVIE-5676300

PATIENT
  Sex: Male

DRUGS (1)
  1. SKYRIZI [Suspect]
     Active Substance: RISANKIZUMAB-RZAA
     Indication: Psoriasis
     Route: 058
     Dates: start: 20191001, end: 20231219

REACTIONS (2)
  - Leukaemia [Fatal]
  - Blood disorder [Unknown]
